FAERS Safety Report 4736237-1 (Version None)
Quarter: 2005Q3

REPORT INFORMATION
  Report Type: 
  Country: None (occurrence: None)
  Receive Date: 20050804
  Receipt Date: 20050804
  Transmission Date: 20060218
  Serious: Yes (Death)
  Sender: FDA-Public Use
  Company Number: None

PATIENT
  Age: 68 Year
  Sex: Male
  Weight: 70.7611 kg

DRUGS (1)
  1. IRINOTECAN HCL [Suspect]
     Indication: METASTASES TO CENTRAL NERVOUS SYSTEM
     Dosage: IV, ONCE/WEEKLY X 3
     Dates: start: 20050711, end: 20050718

REACTIONS (13)
  - ASTHENIA [None]
  - CHILLS [None]
  - DEHYDRATION [None]
  - DIARRHOEA [None]
  - GENERAL PHYSICAL HEALTH DETERIORATION [None]
  - GRAM STAIN POSITIVE [None]
  - MULTI-ORGAN FAILURE [None]
  - NEUTROPENIA [None]
  - PRODUCTIVE COUGH [None]
  - PSEUDOMONAS INFECTION [None]
  - PYREXIA [None]
  - SEPSIS [None]
  - SPUTUM DISCOLOURED [None]
